FAERS Safety Report 7797827-5 (Version None)
Quarter: 2011Q4

REPORT INFORMATION
  Report Type: 
  Country: None (occurrence: None)
  Receive Date: 20111005
  Receipt Date: 20110928
  Transmission Date: 20120403
  Serious: Yes (Hospitalization)
  Sender: FDA-Public Use
  Company Number: US-B.I. PHARMACEUTICALS,INC./RIDGEFIELD-2011-BP-23024BP

PATIENT
  Sex: Male

DRUGS (4)
  1. COUMADIN [Concomitant]
  2. SOTALOL HCL [Concomitant]
  3. METOPROLOL TARTRATE [Concomitant]
  4. PRADAXA [Suspect]
     Indication: ATRIAL FIBRILLATION
     Dosage: 300 MG
     Route: 048
     Dates: start: 20110901

REACTIONS (5)
  - DYSPNOEA [None]
  - CARDIAC FIBRILLATION [None]
  - PULMONARY OEDEMA [None]
  - OEDEMA PERIPHERAL [None]
  - CARDIAC FAILURE CONGESTIVE [None]
